FAERS Safety Report 17466639 (Version 4)
Quarter: 2020Q2

REPORT INFORMATION
  Report Type: Spontaneous
  Country: US (occurrence: US)
  Receive Date: 20200227
  Receipt Date: 20200408
  Transmission Date: 20200713
  Serious: Yes (Other)
  Sender: FDA-Public Use
  Company Number: NVSC2020US048254

PATIENT
  Sex: Male

DRUGS (4)
  1. SULFADIAZINE. [Suspect]
     Active Substance: SULFADIAZINE
     Route: 065
  2. SIMVASTATIN. [Concomitant]
     Active Substance: SIMVASTATIN
     Indication: BLOOD CHOLESTEROL
     Route: 065
  3. LINOSPRIL [Concomitant]
     Indication: HYPERTENSION
     Dosage: 10 MG
     Route: 065
  4. SULFADIAZINE. [Suspect]
     Active Substance: SULFADIAZINE
     Indication: LABYRINTHITIS
     Dosage: 500 MG, TID (3 PILLS)
     Route: 065
     Dates: start: 20191219

REACTIONS (11)
  - Heart rate increased [Unknown]
  - Renal pain [Unknown]
  - Colitis ulcerative [Unknown]
  - Arthralgia [Not Recovered/Not Resolved]
  - Nephrolithiasis [Not Recovered/Not Resolved]
  - Blood creatinine increased [Unknown]
  - Product prescribing error [Unknown]
  - Vertigo [Unknown]
  - Product dispensing error [Unknown]
  - Back pain [Unknown]
  - Wrong product administered [Unknown]
